FAERS Safety Report 11898768 (Version 1)
Quarter: 2016Q1

REPORT INFORMATION
  Report Type: Spontaneous
  Country: US (occurrence: US)
  Receive Date: 20160108
  Receipt Date: 20160108
  Transmission Date: 20160526
  Serious: No
  Sender: FDA-Public Use
  Company Number: US-ASTRAZENECA-2015SF31849

PATIENT
  Age: 59 Year
  Sex: Female

DRUGS (4)
  1. BROVANA [Suspect]
     Active Substance: ARFORMOTEROL TARTRATE
     Route: 065
  2. TUDORZA PRESSAIR [Suspect]
     Active Substance: ACLIDINIUM BROMIDE
     Indication: CHRONIC OBSTRUCTIVE PULMONARY DISEASE
     Route: 055
     Dates: start: 201504
  3. XOPENEX [Concomitant]
     Active Substance: LEVALBUTEROL HYDROCHLORIDE
     Indication: CHRONIC OBSTRUCTIVE PULMONARY DISEASE
     Route: 055
  4. BUDESONIDE. [Suspect]
     Active Substance: BUDESONIDE
     Route: 065

REACTIONS (14)
  - Irritable bowel syndrome [Unknown]
  - Fear of eating [Unknown]
  - Drug dose omission [Unknown]
  - Feeling jittery [Unknown]
  - Rash generalised [Unknown]
  - Abdominal pain [Unknown]
  - Haemorrhage [Recovered/Resolved]
  - Total lung capacity decreased [Unknown]
  - Body height decreased [Unknown]
  - Weight increased [Unknown]
  - Osteopenia [Unknown]
  - Tooth disorder [Unknown]
  - Weight decreased [Unknown]
  - Product quality issue [Unknown]

NARRATIVE: CASE EVENT DATE: 2015
